FAERS Safety Report 4448897-3 (Version None)
Quarter: 2004Q3

REPORT INFORMATION
  Report Type: 
  Country: None (occurrence: None)
  Receive Date: 20040909
  Receipt Date: 20040826
  Transmission Date: 20050211
  Serious: Yes (Other)
  Sender: FDA-Public Use
  Company Number: HQWYE639827AUG04

PATIENT
  Age: 95 Year
  Sex: Female
  Weight: 48.58 kg

DRUGS (6)
  1. PROTONIX [Suspect]
     Indication: ABDOMINAL PAIN
     Dosage: 40 MG 1X PER 1 DAY, ORAL
     Route: 048
     Dates: start: 20040701
  2. CELEBREX [Concomitant]
  3. VITAMINS (VITAMINS) [Concomitant]
  4. CALCIUM (CALCIUM) [Concomitant]
  5. MAGNESIUM (MAGNESIUM) [Concomitant]
  6. ASPIRIN [Concomitant]

REACTIONS (2)
  - CONDITION AGGRAVATED [None]
  - MACULAR DEGENERATION [None]
